FAERS Safety Report 5979445-4 (Version None)
Quarter: 2008Q4

REPORT INFORMATION
  Report Type: 
  Country: None (occurrence: None)
  Receive Date: 20081126
  Receipt Date: 20081113
  Transmission Date: 20090506
  Serious: Yes (Life-Threatening, Hospitalization)
  Sender: FDA-Public Use
  Company Number: 2008S1020417

PATIENT
  Age: 76 Year
  Sex: Female

DRUGS (8)
  1. PERINDOPRIL ERBUMINE [Suspect]
     Dosage: 2 MG; DAILY; ORAL
     Route: 048
     Dates: end: 20081006
  2. CORDARONE [Suspect]
     Dosage: 200 MG; DAILY; ORAL
     Route: 048
     Dates: end: 20081006
  3. BISOPROLOL FUMARATE [Suspect]
     Dosage: 1.25 MG; DAILY; ORAL
     Route: 048
     Dates: end: 20081006
  4. LASIX [Suspect]
     Dosage: 250 MG; TWICE A DAY; ORAL
     Route: 048
     Dates: end: 20081006
  5. IMOVANE (CON.) [Concomitant]
  6. DEDROGYL (CON.) [Concomitant]
  7. INSULIN ASPART (CON.) [Concomitant]
  8. LANTUS (CON.) [Concomitant]

REACTIONS (10)
  - BLOOD PRESSURE SYSTOLIC INCREASED [None]
  - BRADYCARDIA [None]
  - BUNDLE BRANCH BLOCK LEFT [None]
  - DERMATITIS [None]
  - DILATATION VENTRICULAR [None]
  - DIZZINESS POSTURAL [None]
  - GENERAL PHYSICAL HEALTH DETERIORATION [None]
  - LEFT VENTRICULAR FAILURE [None]
  - OEDEMA PERIPHERAL [None]
  - RENAL FAILURE CHRONIC [None]
